FAERS Safety Report 5366889-7 (Version None)
Quarter: 2007Q2

REPORT INFORMATION
  Report Type: 
  Country: None (occurrence: None)
  Receive Date: 20070622
  Receipt Date: 20061016
  Transmission Date: 20071010
  Serious: No
  Sender: FDA-Public Use
  Company Number: US-ASTRAZENECA-2006UW19999

PATIENT
  Age: 85 Year
  Sex: Male
  Weight: 108.9 kg

DRUGS (5)
  1. RHINOCORT [Suspect]
     Indication: NASAL CONGESTION
     Route: 045
     Dates: start: 20061014, end: 20061016
  2. LUPRON [Concomitant]
  3. WATER PILL [Concomitant]
  4. ZANTAC [Concomitant]
  5. COZAAR [Concomitant]

REACTIONS (1)
  - NASAL CONGESTION [None]
